FAERS Safety Report 8923493 (Version 1)
Quarter: 2012Q4

REPORT INFORMATION
  Report Type: Spontaneous
  Country: US (occurrence: None)
  Receive Date: 20121115
  Receipt Date: 20121115
  Transmission Date: 20130627
  Serious: No
  Sender: FDA-Public Use
  Company Number: None

PATIENT
  Age: 73 Year
  Sex: Male

DRUGS (3)
  1. BACTRIM [Suspect]
     Indication: FOOT ULCER
     Dates: start: 20101201, end: 20101217
  2. HYDRALAZINE [Suspect]
     Dates: start: 20110107, end: 20110113
  3. TIGECYCLINE [Suspect]
     Dates: start: 20110105, end: 20110121

REACTIONS (7)
  - Jaundice [None]
  - Pruritus [None]
  - Drug-induced liver injury [None]
  - Aspartate aminotransferase increased [None]
  - Alanine aminotransferase increased [None]
  - Blood alkaline phosphatase increased [None]
  - Blood bilirubin increased [None]
